FAERS Safety Report 7918013-1 (Version None)
Quarter: 2011Q4

REPORT INFORMATION
  Report Type: 
  Country: None (occurrence: None)
  Receive Date: 20111114
  Receipt Date: 20111107
  Transmission Date: 20120403
  Serious: Yes (Hospitalization)
  Sender: FDA-Public Use
  Company Number: AUR-APL-2011-05609

PATIENT
  Age: 75 Year
  Sex: Male

DRUGS (11)
  1. ATENOLOL [Suspect]
     Indication: HYPERTENSION
     Dosage: (25 MG, 1 D), ORAL
     Route: 048
     Dates: start: 20080101, end: 20110808
  2. SNVACOR (SIMVASTATIN) [Concomitant]
  3. PERIDON (DOMPERIDONE) [Concomitant]
  4. DEPONIT (GLYCERYL TRINITRATE) [Concomitant]
  5. COUMADIN [Concomitant]
  6. ROCALTROL [Concomitant]
  7. TRANSTEC (BUPRENORPHINE) [Concomitant]
  8. OMEPRAZOLE [Concomitant]
  9. TACHIDOL (PANADEINE CO) [Concomitant]
  10. CORDARONE [Suspect]
     Indication: ATRIAL FIBRILLATION
     Dosage: (1 DOSAGE FORMS, 1 D), ORAL
     Route: 048
     Dates: start: 20080101, end: 20110808
  11. FUROSEMIDE [Concomitant]

REACTIONS (2)
  - BRADYCARDIA [None]
  - PRESYNCOPE [None]
